FAERS Safety Report 9536316 (Version 1)
Quarter: 2013Q2

REPORT INFORMATION
  Report Type: Spontaneous
  Country: US (occurrence: None)
  Receive Date: 20130517
  Receipt Date: 20130517
  Transmission Date: 20140414
  Serious: No
  Sender: FDA-Public Use
  Company Number: 1000044511

PATIENT
  Age: 50 Year
  Sex: Male

DRUGS (3)
  1. VIIBRYD [Suspect]
     Indication: DEPRESSION
     Route: 048
     Dates: start: 201304
  2. NORVASC (AMLEODIPINE BESILATE) (AMLODIPINE BESILATE) [Concomitant]
  3. LOTENSIN (BENAZEPRIL) (BENAZEPRIL) [Concomitant]

REACTIONS (1)
  - Feeling abnormal [None]
